FAERS Safety Report 19944903 (Version 2)
Quarter: 2021Q4

REPORT INFORMATION
  Report Type: Spontaneous
  Country: US (occurrence: None)
  Receive Date: 20211012
  Receipt Date: 20211203
  Transmission Date: 20220303
  Serious: No
  Sender: FDA-Public Use
  Company Number: 2021A752149

PATIENT
  Age: 70 Year
  Sex: Female

DRUGS (4)
  1. BYDUREON BCISE [Suspect]
     Active Substance: EXENATIDE
     Indication: Type 2 diabetes mellitus
     Route: 058
     Dates: start: 202107
  2. BYDUREON [Suspect]
     Active Substance: EXENATIDE
     Indication: Type 2 diabetes mellitus
     Route: 058
     Dates: end: 202107
  3. BYETTA [Suspect]
     Active Substance: EXENATIDE
     Indication: Type 2 diabetes mellitus
     Dosage: DAILY
     Route: 058
  4. HYDROCHLOROTHIAZIDE\LISINOPRIL [Concomitant]
     Active Substance: HYDROCHLOROTHIAZIDE\LISINOPRIL

REACTIONS (14)
  - Injection site mass [Not Recovered/Not Resolved]
  - Large intestine polyp [Unknown]
  - Fall [Recovering/Resolving]
  - Body height decreased [Not Recovered/Not Resolved]
  - Ligament sprain [Recovering/Resolving]
  - Injection site pain [Unknown]
  - Incorrect dose administered by device [Unknown]
  - Wrong technique in product usage process [Unknown]
  - Device use issue [Recovered/Resolved]
  - Intentional product misuse [Unknown]
  - Device leakage [Unknown]
  - Drug delivery system issue [Unknown]
  - Product use issue [Unknown]
  - Injection site extravasation [Unknown]

NARRATIVE: CASE EVENT DATE: 20210801
